FAERS Safety Report 19698842 (Version 1)
Quarter: 2021Q3

REPORT INFORMATION
  Report Type: Spontaneous
  Country: DE (occurrence: DE)
  Receive Date: 20210813
  Receipt Date: 20210813
  Transmission Date: 20211014
  Serious: Yes (Other)
  Sender: FDA-Public Use
  Company Number: DE-PFIZER INC-202100972973

PATIENT
  Age: 7 Year
  Sex: Male
  Weight: 19 kg

DRUGS (1)
  1. CYTOTEC [Suspect]
     Active Substance: MISOPROSTOL
     Indication: LABOUR INDUCTION
     Dosage: 1/ 25MG AND 1/50MG
     Route: 064
     Dates: start: 20131221, end: 20131221

REACTIONS (6)
  - Foetal exposure during pregnancy [Recovered/Resolved with Sequelae]
  - Poor sucking reflex [Recovered/Resolved with Sequelae]
  - Developmental delay [Recovered/Resolved with Sequelae]
  - Epilepsy [Recovered/Resolved with Sequelae]
  - Dyspepsia [Recovered/Resolved with Sequelae]
  - Hypertonia [Recovered/Resolved with Sequelae]

NARRATIVE: CASE EVENT DATE: 20131222
